FAERS Safety Report 12784690 (Version 1)
Quarter: 2016Q3

REPORT INFORMATION
  Report Type: Other
  Country: JP (occurrence: JP)
  Receive Date: 20160927
  Receipt Date: 20160927
  Transmission Date: 20161109
  Serious: Yes (Other)
  Sender: FDA-Public Use
  Company Number: 2016-001905 F/U 1 WARNER CHILCOTT

PATIENT
  Age: 88 Year
  Sex: Female

DRUGS (3)
  1. MIKAMETAN [Concomitant]
     Dates: start: 20131026
  2. ETODOLAC. [Concomitant]
     Active Substance: ETODOLAC
     Dates: start: 20110625
  3. ACTONEL [Suspect]
     Active Substance: RISEDRONATE SODIUM
     Route: 048
     Dates: start: 20150303, end: 20160725

REACTIONS (1)
  - Osteonecrosis of external auditory canal [Recovering/Resolving]

NARRATIVE: CASE EVENT DATE: 20160603
